FAERS Safety Report 5006821-9 (Version None)
Quarter: 2006Q2

REPORT INFORMATION
  Report Type: 
  Country: None (occurrence: None)
  Receive Date: 20060516
  Receipt Date: 20060508
  Transmission Date: 20061013
  Serious: Yes (Other)
  Sender: FDA-Public Use
  Company Number: 2005168160

PATIENT
  Age: 10 Year
  Sex: Male
  Weight: 20 kg

DRUGS (3)
  1. EPLERENONE          (EPLERENONE) [Suspect]
     Indication: HYPERTENSION
     Dosage: 50 MG (25 MG, BID), ORAL
     Route: 048
     Dates: start: 20050509, end: 20051223
  2. MULTIVITAMINS AND IRON (MULTIVITAMINS AND IRON) [Concomitant]
  3. SODAMINT                (SODIUM BICARBONATE) [Concomitant]

REACTIONS (3)
  - BLOOD CORTISOL DECREASED [None]
  - OESTRADIOL INCREASED [None]
  - PROGESTERONE INCREASED [None]
